FAERS Safety Report 6568274-9 (Version None)
Quarter: 2010Q1

REPORT INFORMATION
  Report Type: 
  Country: None (occurrence: None)
  Receive Date: 20100128
  Receipt Date: 20100121
  Transmission Date: 20100710
  Serious: Yes (Other)
  Sender: FDA-Public Use
  Company Number: 2009US004199

PATIENT
  Age: 77 Year
  Sex: Female

DRUGS (21)
  1. LEXISCAN [Suspect]
     Indication: SCAN MYOCARDIAL PERFUSION
     Dosage: IV NOS
     Route: 042
     Dates: start: 20091112, end: 20091112
  2. CARDIZEM [Concomitant]
  3. NIFEDICAL XL (NIFEDIPINE) [Concomitant]
  4. ACTOS [Concomitant]
  5. HUMALOG [Concomitant]
  6. LANTUS [Concomitant]
  7. GLIPIZIDE [Concomitant]
  8. ACIPHEX [Concomitant]
  9. ARIMIDEX [Concomitant]
  10. ASPIRN (ACETYLSALICYLIC ACID) [Concomitant]
  11. CALCIUM (CALCIUM) [Concomitant]
  12. DIOVAN [Concomitant]
  13. LASIX [Concomitant]
  14. LORAZEPAM [Concomitant]
  15. MONOPRIL [Concomitant]
  16. MULTIVITAMIN [Concomitant]
  17. NEURONTIN [Concomitant]
  18. PROCRIT [Concomitant]
  19. TOPROL-XL [Concomitant]
  20. VIOKASE (PANCREATIN) [Concomitant]
  21. VYTORIN [Concomitant]

REACTIONS (1)
  - LETHARGY [None]
